FAERS Safety Report 9284220 (Version 1)
Quarter: 2013Q2

REPORT INFORMATION
  Report Type: Spontaneous
  Country: US (occurrence: US)
  Receive Date: 20130510
  Receipt Date: 20130510
  Transmission Date: 20140414
  Serious: No
  Sender: FDA-Public Use
  Company Number: US-ASTRAZENECA-2013SE30712

PATIENT
  Sex: Female

DRUGS (2)
  1. SYMBICORT [Suspect]
     Indication: COUGH
     Dosage: 160/4.5 MCG, ONE PUFF, ONCE/SINGLE ADMINISTRATION
     Route: 055
     Dates: start: 2013
  2. SYMBICORT [Suspect]
     Indication: WHEEZING
     Dosage: 160/4.5 MCG, ONE PUFF, ONCE/SINGLE ADMINISTRATION
     Route: 055
     Dates: start: 2013

REACTIONS (4)
  - Dyspnoea [Not Recovered/Not Resolved]
  - Insomnia [Not Recovered/Not Resolved]
  - Drug ineffective [Unknown]
  - Intentional drug misuse [Unknown]
